FAERS Safety Report 8055444-6 (Version None)
Quarter: 2012Q1

REPORT INFORMATION
  Report Type: 
  Country: None (occurrence: None)
  Receive Date: 20120119
  Receipt Date: 20120106
  Transmission Date: 20120608
  Serious: Yes (Other)
  Sender: FDA-Public Use
  Company Number: BE-UCBSA-047348

PATIENT
  Age: 61 Year
  Sex: Female
  Weight: 112.5 kg

DRUGS (5)
  1. ALENDRONATE SODIUM [Concomitant]
     Dosage: DOSE PER INTAKE:70 ; NUMBER OF INTAKE: 1/WEEK
     Route: 048
     Dates: start: 20101018
  2. OMEPRAZOLE [Concomitant]
     Indication: GASTRIC ULCER
     Dosage: DOSE PER INTAKE:40 ; NO. OF INTAKE:1 ; DAILY DOSE:40
     Route: 048
  3. PLAQUENIL [Concomitant]
     Indication: RHEUMATOID ARTHRITIS
     Route: 048
     Dates: start: 20101018
  4. LEVOTHYROXINE SODIUM [Concomitant]
     Indication: HYPOTHYROIDISM
     Route: 048
  5. CIMZIA [Suspect]
     Indication: RHEUMATOID ARTHRITIS
     Dosage: DOSE: 200 MG
     Route: 058
     Dates: end: 20110801

REACTIONS (1)
  - PRURITUS GENERALISED [None]
